FAERS Safety Report 22153520 (Version 1)
Quarter: 2023Q1

REPORT INFORMATION
  Report Type: Spontaneous
  Country: US (occurrence: US)
  Receive Date: 20230330
  Receipt Date: 20230330
  Transmission Date: 20230417
  Serious: Yes (Death, Other)
  Sender: FDA-Public Use
  Company Number: US-BRISTOL-MYERS SQUIBB COMPANY-2023-042699

PATIENT
  Age: 81 Year
  Sex: Female
  Weight: 67.49 kg

DRUGS (1)
  1. REVLIMID [Suspect]
     Active Substance: LENALIDOMIDE
     Indication: Anaemia
     Dosage: FREQUENCY: DAILY
     Route: 048

REACTIONS (5)
  - Myelodysplastic syndrome [Fatal]
  - Cardiac failure [Fatal]
  - Gastrointestinal haemorrhage [Fatal]
  - Asthenia [Fatal]
  - Off label use [Unknown]
